FAERS Safety Report 6287457-9 (Version None)
Quarter: 2009Q4

REPORT INFORMATION
  Report Type: 
  Country: None (occurrence: None)
  Receive Date: 20090727
  Receipt Date: 20090715
  Transmission Date: 20100525
  Serious: Yes (Death)
  Sender: FDA-Public Use
  Company Number: GXKR2009GB08074

PATIENT
  Age: 80 Year
  Sex: Female
  Weight: 29 kg

DRUGS (5)
  1. PHENOXYMETHYLPENICILLIN [Suspect]
     Indication: CELLULITIS
     Dosage: 750 MG, QID
     Dates: start: 20081118, end: 20081125
  2. CEPHRADINE [Suspect]
     Indication: CELLULITIS
     Dosage: 500 MG, QID
     Dates: start: 20081118, end: 20081125
  3. BUMETADINE (BUMETADINE) [Concomitant]
  4. PHENOBARBITAL TAB [Concomitant]
  5. JANUVIA [Suspect]
     Indication: TYPE 2 DIABETES MELLITUS
     Dosage: 100 MG, QD
     Dates: start: 20080707, end: 20081125

REACTIONS (3)
  - INFECTION [None]
  - JAUNDICE CHOLESTATIC [None]
  - MYOCARDIAL INFARCTION [None]
